FAERS Safety Report 23241356 (Version 1)
Quarter: 2023Q4

REPORT INFORMATION
  Report Type: Spontaneous
  Country: HR (occurrence: HR)
  Receive Date: 20231129
  Receipt Date: 20231129
  Transmission Date: 20240110
  Serious: Yes (Death, Other)
  Sender: FDA-Public Use
  Company Number: HR-PFIZER INC-PV202300192522

PATIENT
  Age: 33 Month
  Sex: Male

DRUGS (2)
  1. VINCRISTINE SULFATE [Suspect]
     Active Substance: VINCRISTINE SULFATE
     Indication: Nephroblastoma
     Dosage: 1.5 MG/M2, CYCLIC
  2. DACTINOMYCIN [Suspect]
     Active Substance: DACTINOMYCIN
     Indication: Nephroblastoma
     Dosage: 15 UG/M2, CYCLIC

REACTIONS (3)
  - Venoocclusive liver disease [Fatal]
  - Fibrinolysis [Fatal]
  - Off label use [Unknown]
